FAERS Safety Report 6162049-0 (Version None)
Quarter: 2009Q2

REPORT INFORMATION
  Report Type: 
  Country: None (occurrence: None)
  Receive Date: 20090417
  Receipt Date: 20090406
  Transmission Date: 20091009
  Serious: Yes (Congenital Anomaly, Other)
  Sender: FDA-Public Use
  Company Number: GXKR2009GB04396

PATIENT
  Age: 12 Week
  Sex: Male

DRUGS (7)
  1. AMOXICILLIN [Suspect]
     Dosage: MATERNAL DOSE: 250 MG TID, TRANSPLACENTAL
     Route: 064
     Dates: start: 20080707
  2. CODEINE PHOSPHATE (NGX) (CODEINE PHOSPHATE) [Suspect]
     Dosage: MATERNAL DOSE: 30 MG PRN, TRANSPLACENTAL
     Route: 064
  3. FERROUS SULFATE TAB [Suspect]
     Dosage: MATERNAL DOSE: 200 MG BID, TRANSPLACENTAL
     Route: 064
     Dates: start: 20081006
  4. VENLAFAXINE (NGX) (VENLAFAXINE) [Suspect]
     Dosage: MATERNAL DOSE: 150 MG, TRANSPLACENTAL
     Route: 064
     Dates: start: 20050624
  5. LITHIUM CARBONATE [Suspect]
     Dosage: MATERNAL DOSE: 1200 MG, TRANSPLACENTAL
     Route: 064
     Dates: start: 20050101
  6. QUETIAPINE FUMARATE [Suspect]
     Dosage: MATERNAL DOSE: 100 MG, TRANSPLACENTAL
     Route: 064
     Dates: start: 20080421
  7. REBOXETINE [Suspect]
     Dosage: MATERNAL DOSE: 4 MG, TRANSPLACENTAL
     Route: 064
     Dates: start: 20050101

REACTIONS (2)
  - MATERNAL DRUGS AFFECTING FOETUS [None]
  - PIERRE ROBIN SYNDROME [None]
